FAERS Safety Report 5950101-1 (Version None)
Quarter: 2008Q4

REPORT INFORMATION
  Report Type: 
  Country: None (occurrence: None)
  Receive Date: 20081112
  Receipt Date: 20081104
  Transmission Date: 20090506
  Serious: Yes (Other)
  Sender: FDA-Public Use
  Company Number: US-ELI_LILLY_AND_COMPANY-US200811001112

PATIENT
  Sex: Female
  Weight: 97.052 kg

DRUGS (3)
  1. GEMZAR [Suspect]
  2. CARBOPLATIN [Concomitant]
  3. FENTANYL [Concomitant]

REACTIONS (25)
  - ACTIVITIES OF DAILY LIVING IMPAIRED [None]
  - ALANINE AMINOTRANSFERASE INCREASED [None]
  - ANOREXIA [None]
  - ARTHRALGIA [None]
  - ASPARTATE AMINOTRANSFERASE INCREASED [None]
  - BLOOD LACTATE DEHYDROGENASE INCREASED [None]
  - ENDOMETRIAL CANCER METASTATIC [None]
  - ERYTHEMA [None]
  - FATIGUE [None]
  - HAEMATOCRIT DECREASED [None]
  - HAEMOGLOBIN DECREASED [None]
  - HEADACHE [None]
  - HIP FRACTURE [None]
  - HOT FLUSH [None]
  - JOINT RANGE OF MOTION DECREASED [None]
  - LYMPHOCYTE PERCENTAGE DECREASED [None]
  - MASTECTOMY [None]
  - MEAN PLATELET VOLUME [None]
  - NAUSEA [None]
  - NEUTROPHIL PERCENTAGE INCREASED [None]
  - PAIN IN EXTREMITY [None]
  - PLATELET COUNT DECREASED [None]
  - RECALL PHENOMENON [None]
  - RED BLOOD CELL COUNT DECREASED [None]
  - RED CELL DISTRIBUTION WIDTH INCREASED [None]
